FAERS Safety Report 7353034-1 (Version None)
Quarter: 2011Q1

REPORT INFORMATION
  Report Type: 
  Country: None (occurrence: None)
  Receive Date: 20110315
  Receipt Date: 20110308
  Transmission Date: 20110831
  Serious: Yes (Death)
  Sender: FDA-Public Use
  Company Number: A0918051A

PATIENT
  Age: 58 Year
  Sex: Female

DRUGS (1)
  1. DYAZIDE [Suspect]
     Route: 065

REACTIONS (1)
  - NEOPLASM MALIGNANT [None]
